FAERS Safety Report 4854782-5 (Version None)
Quarter: 2005Q4

REPORT INFORMATION
  Report Type: 
  Country: None (occurrence: None)
  Receive Date: 20051215
  Receipt Date: 20051130
  Transmission Date: 20060501
  Serious: Yes (Life-Threatening)
  Sender: FDA-Public Use
  Company Number: PHBS2005NL17720

PATIENT
  Age: 62 Year
  Sex: Female

DRUGS (9)
  1. BACLOFEN [Suspect]
     Route: 065
  2. SOTALOL HCL [Concomitant]
  3. PAROXETINE HCL [Concomitant]
  4. DUPHALAC [Concomitant]
  5. PREDNISONE [Concomitant]
  6. ASPIRIN [Concomitant]
  7. OMEPRAZOLE [Concomitant]
  8. ACTONEL [Concomitant]
  9. VALPROIC ACID [Suspect]
     Route: 065

REACTIONS (8)
  - COMA [None]
  - DEPRESSED LEVEL OF CONSCIOUSNESS [None]
  - HYPERAMMONAEMIA [None]
  - LUNG INFILTRATION [None]
  - METABOLIC ENCEPHALOPATHY [None]
  - ORAL INTAKE REDUCED [None]
  - PYREXIA [None]
  - SOMNOLENCE [None]
